FAERS Safety Report 21001596 (Version 1)
Quarter: 2022Q2

REPORT INFORMATION
  Report Type: Spontaneous
  Country: US (occurrence: US)
  Receive Date: 20220624
  Receipt Date: 20220624
  Transmission Date: 20220721
  Serious: No
  Sender: FDA-Public Use
  Company Number: US-BioHaven Pharmaceuticals-2022BHV001057

PATIENT
  Age: 67 Year
  Sex: Female
  Weight: 46.308 kg

DRUGS (2)
  1. NURTEC ODT [Suspect]
     Active Substance: RIMEGEPANT SULFATE
     Indication: Migraine
     Dosage: 1 TABLET / TAKE THE NURTEC TWICE A WEEK WHEN YOU HAVE A HEADACHE COMING ON
     Route: 065
     Dates: start: 20211219, end: 202112
  2. EFFEXOR [Concomitant]
     Active Substance: VENLAFAXINE HYDROCHLORIDE
     Indication: Product used for unknown indication
     Dosage: TAKING EFFEXOR FOR THE PAST THREE DAYS
     Route: 065
     Dates: start: 2022

REACTIONS (1)
  - Flatulence [Recovered/Resolved]

NARRATIVE: CASE EVENT DATE: 20211201
